FAERS Safety Report 8311137-9 (Version None)
Quarter: 2012Q2

REPORT INFORMATION
  Report Type: 
  Country: None (occurrence: None)
  Receive Date: 20120423
  Receipt Date: 20120405
  Transmission Date: 20120825
  Serious: Yes (Life-Threatening, Hospitalization)
  Sender: FDA-Public Use
  Company Number: 7124170

PATIENT
  Age: 59 Year
  Sex: Female

DRUGS (2)
  1. VOLTAREN [Suspect]
     Indication: BACK PAIN
     Dosage: 150 MG (75 MG, 1-0-1) ORAL
     Route: 048
     Dates: start: 20111029
  2. LEVOTHYROXINE SODIUM [Suspect]
     Indication: HYPOTHYROIDISM
     Dosage: 50 MG (50 MG, 1-0-0)  FOR YEARS
     Route: 048

REACTIONS (3)
  - PRURITUS [None]
  - RASH GENERALISED [None]
  - LOSS OF CONSCIOUSNESS [None]
